FAERS Safety Report 7515872-1 (Version None)
Quarter: 2011Q2

REPORT INFORMATION
  Report Type: 
  Country: None (occurrence: None)
  Receive Date: 20110601
  Receipt Date: 20110528
  Transmission Date: 20111010
  Serious: No
  Sender: FDA-Public Use
  Company Number: US-PFIZER INC-2011115604

PATIENT
  Sex: Female
  Weight: 104.31 kg

DRUGS (1)
  1. ADVIL LIQUI-GELS [Suspect]
     Dosage: 400 MG, 2X/DAY
     Route: 048
     Dates: start: 20110527, end: 20110528

REACTIONS (1)
  - LIP BLISTER [None]
